FAERS Safety Report 7700262-9 (Version None)
Quarter: 2011Q3

REPORT INFORMATION
  Report Type: 
  Country: None (occurrence: None)
  Receive Date: 20110816
  Receipt Date: 20110728
  Transmission Date: 20111222
  Serious: Yes (Hospitalization, Other)
  Sender: FDA-Public Use
  Company Number: JPI-P-016095

PATIENT
  Age: 46 Year
  Sex: Male
  Weight: 102.0593 kg

DRUGS (6)
  1. TRAZODONE HYDROCHLORIDE [Concomitant]
  2. ALPRAZOLAM [Concomitant]
  3. XYREM [Suspect]
     Indication: INSOMNIA
     Dosage: SEE IMAGE
     Route: 048
     Dates: start: 20110101, end: 20110722
  4. XYREM [Suspect]
     Indication: INSOMNIA
     Dosage: SEE IMAGE
     Route: 048
     Dates: start: 20110301, end: 20110101
  5. XYREM [Suspect]
     Indication: INSOMNIA
     Dosage: SEE IMAGE
     Route: 048
     Dates: start: 20110723, end: 20110723
  6. CLOMIPRAMINE HYDROCHLORIDE [Concomitant]

REACTIONS (5)
  - DRUG WITHDRAWAL SYNDROME [None]
  - DEMENTIA [None]
  - DELUSION [None]
  - ANKLE FRACTURE [None]
  - HALLUCINATION [None]
